FAERS Safety Report 25373663 (Version 2)
Quarter: 2025Q2

REPORT INFORMATION
  Report Type: Spontaneous
  Country: ES (occurrence: ES)
  Receive Date: 20250529
  Receipt Date: 20250602
  Transmission Date: 20250716
  Serious: Yes (Other)
  Sender: CELLTRION
  Company Number: ES-ROCHE-10000144823

PATIENT

DRUGS (16)
  1. BEVACIZUMAB [Suspect]
     Active Substance: BEVACIZUMAB
     Indication: Hepatocellular carcinoma
     Route: 042
     Dates: start: 20240228
  2. ATEZOLIZUMAB [Suspect]
     Active Substance: ATEZOLIZUMAB
     Indication: Hepatocellular carcinoma
     Route: 042
     Dates: start: 20240228
  3. TIRAGOLUMAB [Suspect]
     Active Substance: TIRAGOLUMAB
     Indication: Hepatocellular carcinoma
     Route: 042
     Dates: start: 20240228
  4. TIRAGOLUMAB [Suspect]
     Active Substance: TIRAGOLUMAB
     Route: 042
  5. RAMIPRIL [Concomitant]
     Active Substance: RAMIPRIL
     Indication: Hypertension
     Route: 048
  6. ACETAMINOPHEN [Concomitant]
     Active Substance: ACETAMINOPHEN
     Indication: Neck pain
     Route: 048
     Dates: start: 20240314
  7. NEBIVOLOL HYDROCHLORIDE [Concomitant]
     Active Substance: NEBIVOLOL HYDROCHLORIDE
     Indication: Hypertension
     Route: 048
     Dates: start: 20240409
  8. ATORVASTATINA [ATORVASTATIN CALCIUM TRIHYDRATE] [Concomitant]
     Indication: Dyslipidaemia
     Route: 048
     Dates: start: 20240409
  9. ASPIRIN [Concomitant]
     Active Substance: ASPIRIN
     Indication: Mesenteric arteriosclerosis
     Route: 048
     Dates: start: 20240409
  10. HYDROCHLOROTHIAZIDE [Concomitant]
     Active Substance: HYDROCHLOROTHIAZIDE
     Indication: Hypertension
     Route: 048
     Dates: start: 20240409
  11. INFLUENZA VIRUS VACCINE [Concomitant]
     Active Substance: INFLUENZA VIRUS VACCINE
     Route: 030
     Dates: start: 20241030, end: 20241030
  12. PNEUMOCOCCAL VACCINE POLYVALENT NOS [Concomitant]
     Active Substance: PNEUMOCOCCAL VACCINE, POLYVALENT
     Route: 030
     Dates: start: 20241030, end: 20241030
  13. PREDNISONE [Concomitant]
     Active Substance: PREDNISONE
     Indication: Hepatic enzyme increased
     Route: 048
     Dates: start: 20241114, end: 20241121
  14. PREDNISONE [Concomitant]
     Active Substance: PREDNISONE
     Route: 048
     Dates: start: 20241122, end: 20241126
  15. PREDNISONE [Concomitant]
     Active Substance: PREDNISONE
     Route: 048
     Dates: start: 20241127, end: 20241130
  16. PREDNISONE [Concomitant]
     Active Substance: PREDNISONE
     Route: 048
     Dates: start: 20241201

REACTIONS (2)
  - Immune-mediated hepatitis [Recovering/Resolving]
  - Intentional product use issue [Unknown]

NARRATIVE: CASE EVENT DATE: 20241105
